FAERS Safety Report 20436045 (Version 2)
Quarter: 2022Q1

REPORT INFORMATION
  Report Type: Spontaneous
  Country: US (occurrence: US)
  Receive Date: 20220207
  Receipt Date: 20220216
  Transmission Date: 20220423
  Serious: Yes (Other)
  Sender: FDA-Public Use
  Company Number: US-BEH-2022141646

PATIENT
  Age: 63 Year
  Sex: Male

DRUGS (3)
  1. HIZENTRA [Suspect]
     Active Substance: HUMAN IMMUNOGLOBULIN G
     Indication: Immunodeficiency common variable
     Dosage: UNK
     Route: 065
  2. HIZENTRA [Suspect]
     Active Substance: HUMAN IMMUNOGLOBULIN G
     Dosage: 10 GRAM, QOW
     Route: 065
     Dates: start: 20220123
  3. HIZENTRA [Suspect]
     Active Substance: HUMAN IMMUNOGLOBULIN G
     Dosage: 25 GRAM, QOW
     Route: 058
     Dates: start: 20220124

REACTIONS (16)
  - Pruritus [Recovering/Resolving]
  - Recalled product administered [Recovering/Resolving]
  - Injection site swelling [Recovering/Resolving]
  - Recalled product administered [Recovering/Resolving]
  - Injection site pruritus [Not Recovered/Not Resolved]
  - Recalled product administered [Not Recovered/Not Resolved]
  - Pruritus [Not Recovered/Not Resolved]
  - Recalled product administered [Not Recovered/Not Resolved]
  - Wheezing [Not Recovered/Not Resolved]
  - Recalled product administered [Not Recovered/Not Resolved]
  - Pruritus [Not Recovered/Not Resolved]
  - Recalled product administered [Not Recovered/Not Resolved]
  - Dyspnoea [Not Recovered/Not Resolved]
  - Recalled product administered [Not Recovered/Not Resolved]
  - Injection site erythema [Recovered/Resolved]
  - Recalled product administered [Recovered/Resolved]

NARRATIVE: CASE EVENT DATE: 20220101
